FAERS Safety Report 6858494-8 (Version None)
Quarter: 2010Q3

REPORT INFORMATION
  Report Type: 
  Country: None (occurrence: None)
  Receive Date: 20100719
  Receipt Date: 20080209
  Transmission Date: 20110219
  Serious: No
  Sender: FDA-Public Use
  Company Number: US-PFIZER INC-2008012707

PATIENT
  Sex: Female
  Weight: 51.4 kg

DRUGS (8)
  1. CHANTIX [Suspect]
     Indication: SMOKING CESSATION THERAPY
     Route: 048
     Dates: start: 20080129
  2. METFORMIN HCL [Concomitant]
  3. NORVASC [Concomitant]
  4. HYDROCHLOROTHIAZIDE [Concomitant]
  5. ACETYLSALICYLIC ACID [Concomitant]
  6. PRAVASTATIN [Concomitant]
  7. CALTRATE [Concomitant]
  8. CENTRUM SILVER [Concomitant]

REACTIONS (2)
  - NAUSEA [None]
  - VOMITING [None]
